FAERS Safety Report 11617599 (Version 1)
Quarter: 2015Q4

REPORT INFORMATION
  Report Type: Spontaneous
  Country: US (occurrence: US)
  Receive Date: 20151009
  Receipt Date: 20151009
  Transmission Date: 20160304
  Serious: Yes (Hospitalization)
  Sender: FDA-Public Use
  Company Number: US-MALLINCKRODT-T201504771

PATIENT
  Sex: Female
  Weight: 63 kg

DRUGS (2)
  1. FENTANYL. [Concomitant]
     Active Substance: FENTANYL
     Indication: ERYTHROMELALGIA
     Dosage: 50 MCG/HR, Q72H
     Route: 062
     Dates: start: 201412
  2. METHADOSE [Suspect]
     Active Substance: METHADONE HYDROCHLORIDE
     Indication: PRODUCT USED FOR UNKNOWN INDICATION
     Dosage: TAPERED UP TO TID DOSING
     Route: 065
     Dates: start: 201505

REACTIONS (3)
  - Weight decreased [Unknown]
  - Personality change [Unknown]
  - Decreased appetite [Unknown]
